FAERS Safety Report 20561157 (Version 1)
Quarter: 2022Q1

REPORT INFORMATION
  Report Type: Spontaneous
  Country: US (occurrence: None)
  Receive Date: 20220305
  Receipt Date: 20220305
  Transmission Date: 20220424
  Serious: Yes (Other)
  Sender: FDA-Public Use
  Company Number: None

PATIENT
  Sex: Female
  Weight: 77.56 kg

DRUGS (2)
  1. MIRENA [Suspect]
     Active Substance: LEVONORGESTREL
  2. NUVARING [Concomitant]
     Active Substance: ETHINYL ESTRADIOL\ETONOGESTREL

REACTIONS (25)
  - Pain [None]
  - Palpitations [None]
  - Hyperhidrosis [None]
  - Headache [None]
  - Nausea [None]
  - Vision blurred [None]
  - Fatigue [None]
  - Facial discomfort [None]
  - Pain [None]
  - Feeling abnormal [None]
  - Pyrexia [None]
  - Pain in jaw [None]
  - Headache [None]
  - Ocular hyperaemia [None]
  - Rash [None]
  - Pruritus [None]
  - Pruritus [None]
  - Weight increased [None]
  - Aspartate aminotransferase increased [None]
  - Alanine aminotransferase increased [None]
  - C-reactive protein increased [None]
  - Red blood cell count increased [None]
  - Red blood cell sedimentation rate increased [None]
  - Eye movement disorder [None]
  - Vaginal odour [None]

NARRATIVE: CASE EVENT DATE: 20211202
